FAERS Safety Report 5097782-5 (Version None)
Quarter: 2006Q3

REPORT INFORMATION
  Report Type: 
  Country: None (occurrence: None)
  Receive Date: 20060824
  Receipt Date: 20060816
  Transmission Date: 20061208
  Serious: Yes (Disabling, Other)
  Sender: FDA-Public Use
  Company Number: WAES 0608USA03670

PATIENT
  Sex: 0

DRUGS (2)
  1. TIMOPTIC-XE [Suspect]
     Dosage: OPHT
     Route: 047
  2. ALPHAGAN P [Concomitant]

REACTIONS (3)
  - AMNESIA [None]
  - HYPONATRAEMIA [None]
  - IMPAIRED DRIVING ABILITY [None]
